FAERS Safety Report 18914476 (Version 1)
Quarter: 2021Q1

REPORT INFORMATION
  Report Type: Spontaneous
  Country: US (occurrence: US)
  Receive Date: 20210218
  Receipt Date: 20210218
  Transmission Date: 20210420
  Serious: No
  Sender: FDA-Public Use
  Company Number: None

PATIENT
  Age: 89 Year
  Sex: Male

DRUGS (1)
  1. AZACITIDINE SDV 100MG [Suspect]
     Active Substance: AZACITIDINE
     Route: 042
     Dates: start: 202101, end: 20210218

REACTIONS (1)
  - Hospice care [None]

NARRATIVE: CASE EVENT DATE: 20210203
